FAERS Safety Report 17583049 (Version 1)
Quarter: 2020Q1

REPORT INFORMATION
  Report Type: Report from Study
  Country: CA (occurrence: CA)
  Receive Date: 20200325
  Receipt Date: 20200325
  Transmission Date: 20200409
  Serious: Yes (Other)
  Sender: FDA-Public Use
  Company Number: CA-NALPROPION PHARMACEUTICALS INC.-2020-009703

PATIENT

DRUGS (7)
  1. CONTRAVE [Suspect]
     Active Substance: BUPROPION HYDROCHLORIDE\NALTREXONE HYDROCHLORIDE
     Dosage: STRENGTH: 90/8 MG, 2 TABLETS IN THE MORNING AND 1 TABLET IN EVENING
     Route: 048
     Dates: start: 20200226, end: 20200227
  2. DILANTIN [Suspect]
     Active Substance: PHENYTOIN
     Indication: SEIZURE
     Dosage: UNK
     Route: 065
  3. AMITRIPTYLINE [Concomitant]
     Active Substance: AMITRIPTYLINE
     Indication: SLEEP DISORDER
     Dosage: HS (AT BEDTIME)
     Route: 048
  4. CONTRAVE [Suspect]
     Active Substance: BUPROPION HYDROCHLORIDE\NALTREXONE HYDROCHLORIDE
     Indication: WEIGHT CONTROL
     Dosage: STRENGTH: 90/8 MG, 1 TABLET IN THE MORNING
     Route: 048
     Dates: start: 20200212, end: 20200218
  5. CONTRAVE [Suspect]
     Active Substance: BUPROPION HYDROCHLORIDE\NALTREXONE HYDROCHLORIDE
     Dosage: STRENGTH: 90/8 MG, 1 TABLET IN THE MORNING AND 1 TABLET IN EVENING
     Route: 048
     Dates: start: 20200219, end: 20200225
  6. CONTRAVE [Suspect]
     Active Substance: BUPROPION HYDROCHLORIDE\NALTREXONE HYDROCHLORIDE
     Dosage: STRENGTH: 90/8 MG, 2 TABLETS IN THE MORNING
     Route: 048
     Dates: start: 20200228, end: 20200228
  7. ADVIL (MEFENAMIC ACID) [Concomitant]
     Active Substance: MEFENAMIC ACID
     Indication: PAIN
     Dosage: 800 MG, (400 MG,2 IN 1 D)
     Route: 048

REACTIONS (4)
  - Adverse event [Unknown]
  - Feeling jittery [Recovering/Resolving]
  - Seizure [Unknown]
  - Oral discomfort [Unknown]

NARRATIVE: CASE EVENT DATE: 202002
